FAERS Safety Report 23594648 (Version 1)
Quarter: 2024Q1

REPORT INFORMATION
  Report Type: Spontaneous
  Country: DK (occurrence: DK)
  Receive Date: 20240305
  Receipt Date: 20240305
  Transmission Date: 20240410
  Serious: Yes (Death, Life-Threatening, Hospitalization)
  Sender: FDA-Public Use
  Company Number: None

PATIENT
  Age: 17 Year
  Sex: Female
  Weight: 70 kg

DRUGS (3)
  1. AZATHIOPRINE [Suspect]
     Active Substance: AZATHIOPRINE
     Indication: Crohn^s disease
     Dosage: 100 MG, QD
     Route: 048
     Dates: start: 20170216, end: 20220825
  2. HYRIMOZ [Suspect]
     Active Substance: ADALIMUMAB-ADAZ
     Indication: Crohn^s disease
     Dosage: 40 MG (14 DAYS)
     Route: 058
     Dates: start: 20211210, end: 20220825
  3. INFLIXIMAB [Suspect]
     Active Substance: INFLIXIMAB
     Indication: Crohn^s disease
     Dosage: 300 MG ONCE EVERY 2-8 WEEKS
     Route: 042
     Dates: start: 20170216

REACTIONS (5)
  - Hepatosplenic T-cell lymphoma [Fatal]
  - Sepsis [Fatal]
  - Dysphonia [Unknown]
  - Pyrexia [Unknown]
  - Hyperhidrosis [Unknown]

NARRATIVE: CASE EVENT DATE: 20210101
